FAERS Safety Report 13967438 (Version 2)
Quarter: 2017Q4

REPORT INFORMATION
  Report Type: Spontaneous
  Country: US (occurrence: US)
  Receive Date: 20170914
  Receipt Date: 20171212
  Transmission Date: 20180320
  Serious: No
  Sender: FDA-Public Use
  Company Number: US-PFIZER INC-2017396388

PATIENT
  Age: 59 Year
  Sex: Female

DRUGS (1)
  1. LYRICA [Suspect]
     Active Substance: PREGABALIN
     Indication: DIABETIC NEPHROPATHY
     Dosage: 150 MG, THREE TIMES A DAY

REACTIONS (4)
  - Migraine [Recovered/Resolved]
  - Withdrawal syndrome [Recovered/Resolved]
  - Restless legs syndrome [Recovered/Resolved]
  - Abdominal pain upper [Recovered/Resolved]
